FAERS Safety Report 24391424 (Version 2)
Quarter: 2024Q4

REPORT INFORMATION
  Report Type: Spontaneous
  Country: US (occurrence: US)
  Receive Date: 20241003
  Receipt Date: 20241007
  Transmission Date: 20250115
  Serious: Yes (Hospitalization, Disabling, Other)
  Sender: PFIZER
  Company Number: US-MLMSERVICE-20240920-PI199496-00232-1

PATIENT
  Age: 74 Year
  Sex: Male

DRUGS (6)
  1. RITUXIMAB [Suspect]
     Active Substance: RITUXIMAB
     Indication: Anti-neutrophil cytoplasmic antibody positive vasculitis
     Dosage: INTERMITTENT RITUXIMAB INFUSIONS
  2. MYCOPHENOLATE MOFETIL [Suspect]
     Active Substance: MYCOPHENOLATE MOFETIL
     Indication: Anti-neutrophil cytoplasmic antibody positive vasculitis
     Dosage: FREQ:12 H;MYCOPHENOLATE MOFETIL 500 MG TWICE A DAY
  3. PREDNISONE [Suspect]
     Active Substance: PREDNISONE
     Indication: Anti-neutrophil cytoplasmic antibody positive vasculitis
     Dosage: FREQ:12 H;INCREASED DOSAGE OF 20 MG TWICE A DAY FOR 5 DAYS
  4. PREDNISONE [Suspect]
     Active Substance: PREDNISONE
     Indication: Chondrocalcinosis
     Dosage: 10 MG ONCE A DAY
  5. PREDNISONE [Suspect]
     Active Substance: PREDNISONE
     Indication: Gout
  6. SULFAMETHOXAZOLE\TRIMETHOPRIM [Concomitant]
     Active Substance: SULFAMETHOXAZOLE\TRIMETHOPRIM
     Indication: Prophylaxis
     Dosage: UNK

REACTIONS (6)
  - Deep vein thrombosis [Recovering/Resolving]
  - Arthritis bacterial [Recovering/Resolving]
  - Anaemia [Recovering/Resolving]
  - Pulmonary nocardiosis [Recovering/Resolving]
  - Haematoma muscle [Recovering/Resolving]
  - Nocardiosis [Recovering/Resolving]
